FAERS Safety Report 5765703-5 (Version None)
Quarter: 2008Q2

REPORT INFORMATION
  Report Type: 
  Country: None (occurrence: None)
  Receive Date: 20080606
  Receipt Date: 20080530
  Transmission Date: 20081010
  Serious: Yes (Hospitalization, Other)
  Sender: FDA-Public Use
  Company Number: 2008S1000183

PATIENT
  Age: 65 Year
  Sex: Female
  Weight: 74.8435 kg

DRUGS (19)
  1. SORIATANE [Suspect]
     Indication: SQUAMOUS CELL CARCINOMA
     Dosage: 25 MG; PO; 25 MG; TIW; PO
     Route: 048
     Dates: start: 20080401, end: 20080501
  2. SORIATANE [Suspect]
     Indication: SQUAMOUS CELL CARCINOMA
     Dosage: 25 MG; PO; 25 MG; TIW; PO
     Route: 048
     Dates: start: 20080501
  3. NEORAL [Suspect]
     Indication: IMMUNOSUPPRESSION
     Dosage: PO; PO
     Route: 048
     Dates: end: 20080501
  4. NEORAL [Suspect]
     Indication: IMMUNOSUPPRESSION
     Dosage: PO; PO
     Route: 048
     Dates: start: 20080501, end: 20080530
  5. ALCOHOL [Suspect]
     Dosage: 3 L;
     Dates: start: 20080401, end: 20080530
  6. NEURONTIN [Suspect]
     Indication: NEUROPATHY PERIPHERAL
     Dates: start: 20080525, end: 20080501
  7. NEURONTIN [Suspect]
     Indication: NEUROPATHY PERIPHERAL
     Dates: start: 20080602
  8. VICODIN [Suspect]
     Indication: TOOTH FRACTURE
     Dates: start: 20080527, end: 20080527
  9. NITROUS OXIDE W/ OXYGEN [Suspect]
     Indication: TOOTH FRACTURE
     Dosage: X1;
     Dates: start: 20080527, end: 20080527
  10. FENTANYL-100 [Suspect]
     Indication: NEUROPATHY PERIPHERAL
     Dosage: X1; TOP
     Route: 061
     Dates: start: 20080526, end: 20080528
  11. RAPAMUNE [Concomitant]
  12. ARIMIDEX [Concomitant]
  13. EFFEXOR [Concomitant]
  14. SYNTHROID [Concomitant]
  15. COREG [Concomitant]
  16. CRESTOR [Concomitant]
  17. CLONIDINE [Concomitant]
  18. CLONAZEPAM [Concomitant]
  19. AMBIEN [Concomitant]

REACTIONS (7)
  - ALCOHOL USE [None]
  - BLOOD CREATININE INCREASED [None]
  - BLOOD UREA INCREASED [None]
  - CONFUSIONAL STATE [None]
  - DRUG INEFFECTIVE [None]
  - DRUG INTERACTION [None]
  - RENAL FAILURE ACUTE [None]
